FAERS Safety Report 8237471-9 (Version None)
Quarter: 2012Q1

REPORT INFORMATION
  Report Type: 
  Country: None (occurrence: None)
  Receive Date: 20120327
  Receipt Date: 20120315
  Transmission Date: 20120608
  Serious: Yes (Hospitalization, Other)
  Sender: FDA-Public Use
  Company Number: PHEH2012US003897

PATIENT
  Sex: Female

DRUGS (22)
  1. ANTIVERT [Concomitant]
     Dosage: 25 MG, UNK
  2. PLAVIX [Concomitant]
     Dosage: 75 MG, QD
  3. ASPIRIN [Concomitant]
     Dosage: 162 MG, QD
     Route: 048
  4. OXYBUTYNIN [Concomitant]
     Dosage: 5 MG, BID
     Route: 048
  5. COREG [Concomitant]
     Dosage: 12.5 MG, QD
  6. LOVASTATIN [Concomitant]
     Dosage: 20 MG, QD
  7. METHYLIN [Concomitant]
     Dosage: 10 MG, QD
     Route: 048
  8. HYDROCODONE [Concomitant]
  9. ZALEPLON [Concomitant]
     Dosage: 10 MG, QHS
  10. FISH OIL [Concomitant]
     Dosage: 1000 MG, UNK
  11. XANAX [Concomitant]
  12. GILENYA [Suspect]
     Indication: MULTIPLE SCLEROSIS
     Dosage: 0.5 MG, QD
     Route: 048
     Dates: start: 20111107, end: 20120111
  13. NIACIN [Concomitant]
     Dosage: 1000 MG, QD
     Route: 048
  14. MIRAPEX [Concomitant]
     Dosage: 0.5 MG, UNK
  15. VITAMIN B COMPLEX CAP [Concomitant]
  16. BACLOFEN [Concomitant]
     Indication: MUSCLE SPASTICITY
     Dosage: 20 MG, QHS
  17. PRAMIPEXOLE DIHYDROCHLORIDE [Concomitant]
     Dosage: 0.5 MG, QD
     Route: 048
  18. GILENYA [Suspect]
     Dosage: 0.5 MG, QD
     Route: 048
     Dates: start: 20111120, end: 20120203
  19. FERROUS SULFATE TAB [Concomitant]
     Dosage: 75 MG, QD
     Route: 048
  20. CALCIUM D [Concomitant]
     Dosage: 500 MG, QD
     Route: 048
  21. OMEPRAZOLE [Concomitant]
     Dosage: 160 MG, QD
     Route: 048
  22. MULTI-VITAMIN [Concomitant]

REACTIONS (30)
  - CORONARY ARTERY STENOSIS [None]
  - VENTRICULAR EXTRASYSTOLES [None]
  - AORTIC VALVE INCOMPETENCE [None]
  - HAEMOGLOBIN DECREASED [None]
  - CHEST DISCOMFORT [None]
  - CHEST PAIN [None]
  - HEART RATE IRREGULAR [None]
  - MITRAL VALVE INCOMPETENCE [None]
  - DIZZINESS [None]
  - SUPRAVENTRICULAR TACHYCARDIA [None]
  - BLOOD TRIGLYCERIDES INCREASED [None]
  - PALPITATIONS [None]
  - DYSPNOEA [None]
  - LEFT VENTRICULAR HYPERTROPHY [None]
  - ATAXIA [None]
  - LYMPHOCYTE COUNT DECREASED [None]
  - MYOCARDIAL INFARCTION [None]
  - BUNDLE BRANCH BLOCK RIGHT [None]
  - SUPRAVENTRICULAR EXTRASYSTOLES [None]
  - BLOOD UREA INCREASED [None]
  - HAEMATOCRIT DECREASED [None]
  - WHITE BLOOD CELL COUNT DECREASED [None]
  - CALCIUM IONISED INCREASED [None]
  - ASTHENIA [None]
  - DYSPNOEA EXERTIONAL [None]
  - SINUS BRADYCARDIA [None]
  - ARRHYTHMIA [None]
  - ANGINA PECTORIS [None]
  - TRICUSPID VALVE INCOMPETENCE [None]
  - BLOOD GLUCOSE INCREASED [None]
